FAERS Safety Report 16117193 (Version 1)
Quarter: 2019Q2

REPORT INFORMATION
  Report Type: Spontaneous
  Country: US (occurrence: US)
  Receive Date: 20190325
  Receipt Date: 20190325
  Transmission Date: 20190711
  Serious: No
  Sender: FDA-Public Use
  Company Number: None

PATIENT
  Age: 43 Year
  Sex: Female
  Weight: 68 kg

DRUGS (4)
  1. ALBUTEROL INHALER AS NEEDED [Concomitant]
  2. BENCAZLIN TOPICAL [Concomitant]
  3. AJOVY [Suspect]
     Active Substance: FREMANEZUMAB-VFRM
     Indication: MIGRAINE
     Dosage: ?          OTHER FREQUENCY:ONCE A MONTH;?
     Route: 058
     Dates: start: 20181205, end: 20190305
  4. IBUPROFEN. [Concomitant]
     Active Substance: IBUPROFEN

REACTIONS (6)
  - Hypogeusia [None]
  - Ageusia [None]
  - Nausea [None]
  - Musculoskeletal discomfort [None]
  - Taste disorder [None]
  - Sensory loss [None]

NARRATIVE: CASE EVENT DATE: 20190325
